FAERS Safety Report 9417778 (Version 1)
Quarter: 2013Q3

REPORT INFORMATION
  Report Type: Spontaneous
  Country: FR (occurrence: FR)
  Receive Date: 20130724
  Receipt Date: 20130724
  Transmission Date: 20140515
  Serious: Yes (Other)
  Sender: FDA-Public Use
  Company Number: FR-GLAXOSMITHKLINE-B0908268A

PATIENT
  Age: 31 Year
  Sex: Male

DRUGS (2)
  1. MALARONE [Suspect]
     Indication: MALARIA
     Dosage: 4TAB PER DAY
     Route: 048
     Dates: start: 20130628, end: 20130630
  2. AMOXICILLINE [Concomitant]
     Indication: OTITIS MEDIA ACUTE
     Route: 065
     Dates: start: 201306, end: 201306

REACTIONS (2)
  - Hepatocellular injury [Recovering/Resolving]
  - Pyrexia [Recovering/Resolving]
